FAERS Safety Report 11418782 (Version 2)
Quarter: 2015Q3

REPORT INFORMATION
  Report Type: Report from Study
  Country: US (occurrence: US)
  Receive Date: 20150826
  Receipt Date: 20150901
  Transmission Date: 20151125
  Serious: Yes (Hospitalization)
  Sender: FDA-Public Use
  Company Number: US-ROCHE-1625297

PATIENT

DRUGS (2)
  1. ALTEPLASE [Suspect]
     Active Substance: ALTEPLASE
     Indication: ISCHAEMIC STROKE
     Dosage: 0.9 MG/KG, MAXIMUM DOSE OF 90 MG, GIVING 10% AS AN IV BOLUS OVER ONE MINUTE, AND THE REMAINING VIA I
     Route: 040
  2. ALTEPLASE [Suspect]
     Active Substance: ALTEPLASE
     Dosage: 0.9 MG/KG, MAXIMUM DOSE OF 90 MG, GIVING 10% AS AN IV BOLUS OVER ONE MINUTE, AND THE REMAINING VIA I
     Route: 041

REACTIONS (1)
  - Deep vein thrombosis [Unknown]
